FAERS Safety Report 10061914 (Version 1)
Quarter: 2014Q2

REPORT INFORMATION
  Report Type: Spontaneous
  Country: US (occurrence: US)
  Receive Date: 20140407
  Receipt Date: 20140407
  Transmission Date: 20141212
  Serious: Yes (Other)
  Sender: FDA-Public Use
  Company Number: US-BEH-2014040595

PATIENT
  Sex: Female

DRUGS (1)
  1. ZEMAIRA [Suspect]

REACTIONS (9)
  - Eye haemorrhage [Unknown]
  - Abdominal discomfort [Unknown]
  - Vomiting [Unknown]
  - Feeling hot [Unknown]
  - Feeling cold [Unknown]
  - Tremor [Unknown]
  - Dizziness [Unknown]
  - Asthenia [Unknown]
  - Headache [Unknown]
